FAERS Safety Report 16969775 (Version 1)
Quarter: 2019Q4

REPORT INFORMATION
  Report Type: Spontaneous
  Country: CA (occurrence: CA)
  Receive Date: 20191029
  Receipt Date: 20191029
  Transmission Date: 20200122
  Serious: Yes (Other)
  Sender: FDA-Public Use
  Company Number: CA-PFIZER INC-2019464524

PATIENT
  Age: 32 Year
  Sex: Female
  Weight: 70 kg

DRUGS (1)
  1. CHAMPIX [Suspect]
     Active Substance: VARENICLINE TARTRATE
     Indication: SMOKING CESSATION THERAPY
     Dosage: UNK

REACTIONS (8)
  - Crying [Unknown]
  - Insomnia [Unknown]
  - Lethargy [Unknown]
  - Nausea [Unknown]
  - Agitation [Unknown]
  - Mood swings [Unknown]
  - Depression [Unknown]
  - Abnormal dreams [Unknown]
